FAERS Safety Report 8993246 (Version 2)
Quarter: 2013Q1

REPORT INFORMATION
  Report Type: Spontaneous
  Country: US (occurrence: US)
  Receive Date: 20130102
  Receipt Date: 20130212
  Transmission Date: 20140127
  Serious: No
  Sender: FDA-Public Use
  Company Number: US-PFIZER INC-2012334360

PATIENT
  Age: 29 Year
  Sex: Female

DRUGS (4)
  1. LYRICA [Suspect]
     Indication: PAIN
     Dosage: 300 MG, 1X/DAY
     Route: 048
     Dates: start: 20121123
  2. PRENATAL VITAMINS [Concomitant]
     Dosage: UNK
  3. PROAIR HFA [Concomitant]
     Dosage: UNK
  4. VICODIN [Concomitant]
     Indication: PAIN
     Dosage: 5-500 MG,  1 TAB BY MOUTH EVERY 4-6 HOURS AS NEEDED
     Route: 048

REACTIONS (5)
  - Raynaud^s phenomenon [Not Recovered/Not Resolved]
  - Laceration [Not Recovered/Not Resolved]
  - Chest pain [Not Recovered/Not Resolved]
  - Pain in extremity [Not Recovered/Not Resolved]
  - Arthralgia [Not Recovered/Not Resolved]
